FAERS Safety Report 21961885 (Version 1)
Quarter: 2023Q1

REPORT INFORMATION
  Report Type: Spontaneous
  Country: US (occurrence: None)
  Receive Date: 20230204
  Receipt Date: 20230204
  Transmission Date: 20230417
  Serious: No
  Sender: FDA-Public Use
  Company Number: None

PATIENT
  Age: 33 Year
  Sex: Male
  Weight: 90 kg

DRUGS (4)
  1. TINACTIN ANTIFUNGAL [Suspect]
     Active Substance: TOLNAFTATE
     Indication: Tinea pedis
     Dosage: FREQUENCY : DAILY;?
     Route: 061
     Dates: start: 20060101, end: 20230101
  2. Honry goat weed [Concomitant]
  3. 5HTP [Concomitant]
  4. LOTRIMIN [Suspect]
     Active Substance: CLOTRIMAZOLE

REACTIONS (4)
  - Condition aggravated [None]
  - Tinea pedis [None]
  - Loss of personal independence in daily activities [None]
  - Mobility decreased [None]

NARRATIVE: CASE EVENT DATE: 20210801
